FAERS Safety Report 6888943-0 (Version None)
Quarter: 2010Q3

REPORT INFORMATION
  Report Type: 
  Country: None (occurrence: None)
  Receive Date: 20100730
  Receipt Date: 20071210
  Transmission Date: 20110219
  Serious: No
  Sender: FDA-Public Use
  Company Number: US-PFIZER INC-2007063052

PATIENT
  Age: 75 Year
  Sex: Female
  Weight: 68.181 kg

DRUGS (1)
  1. LIPITOR [Suspect]
     Dates: end: 20070101

REACTIONS (2)
  - MYALGIA [None]
  - TENDONITIS [None]
